FAERS Safety Report 22192642 (Version 1)
Quarter: 2023Q2

REPORT INFORMATION
  Report Type: Spontaneous
  Country: US (occurrence: None)
  Receive Date: 20230410
  Receipt Date: 20230410
  Transmission Date: 20230722
  Serious: Yes (Disabling)
  Sender: FDA-Public Use
  Company Number: None

PATIENT
  Age: 40 Year
  Sex: Female
  Weight: 67.5 kg

DRUGS (1)
  1. MY CHOICE TM [Suspect]
     Active Substance: LEVONORGESTREL
     Indication: Contraception
     Dosage: OTHER QUANTITY : 1 TABLET(S);?OTHER FREQUENCY : ONCE;?
     Route: 048
     Dates: start: 20230319, end: 20230319

REACTIONS (3)
  - Heavy menstrual bleeding [None]
  - Abnormal menstrual clots [None]
  - Ovarian cyst [None]

NARRATIVE: CASE EVENT DATE: 20230323
